FAERS Safety Report 7514189-9 (Version None)
Quarter: 2011Q2

REPORT INFORMATION
  Report Type: 
  Country: None (occurrence: None)
  Receive Date: 20110531
  Receipt Date: 20110526
  Transmission Date: 20111010
  Serious: Yes (Death, Hospitalization)
  Sender: FDA-Public Use
  Company Number: FR-ABBOTT-11P-056-0728653-00

PATIENT
  Age: 7 Year
  Sex: Female

DRUGS (8)
  1. PHENYTOIN [Concomitant]
     Indication: PRODUCT USED FOR UNKNOWN INDICATION
  2. CLONAZEPAM [Suspect]
     Indication: EPILEPSY
     Route: 048
  3. TOPIRAMATE [Suspect]
     Indication: ENCEPHALOPATHY
     Route: 048
     Dates: end: 20100716
  4. PHENOBARBITAL TAB [Concomitant]
     Indication: PRODUCT USED FOR UNKNOWN INDICATION
  5. ZARONTIN [Suspect]
     Indication: ENCEPHALOPATHY
     Route: 048
     Dates: end: 20100716
  6. VALPROIC ACID [Suspect]
     Indication: ENCEPHALOPATHY
     Dosage: DAILY
     Route: 048
     Dates: end: 20100716
  7. DIACOMIT [Suspect]
     Indication: ENCEPHALOPATHY
     Route: 048
     Dates: end: 20100716
  8. ACETAMINOPHEN [Concomitant]
     Indication: PRODUCT USED FOR UNKNOWN INDICATION

REACTIONS (5)
  - RENAL FAILURE ACUTE [None]
  - STATUS EPILEPTICUS [None]
  - HYPERTHERMIA MALIGNANT [None]
  - RHABDOMYOLYSIS [None]
  - ACUTE HEPATIC FAILURE [None]
